FAERS Safety Report 16536888 (Version 2)
Quarter: 2019Q3

REPORT INFORMATION
  Report Type: Spontaneous
  Country: CN (occurrence: CN)
  Receive Date: 20190707
  Receipt Date: 20190730
  Transmission Date: 20191004
  Serious: Yes (Other)
  Sender: FDA-Public Use
  Company Number: CN-ASTRAZENECA-2019SE96201

PATIENT
  Age: 753 Month
  Sex: Male

DRUGS (2)
  1. APATINIB MESYLATE [Concomitant]
     Active Substance: APATINIB
     Dates: start: 201808, end: 201904
  2. IRESSA [Suspect]
     Active Substance: GEFITINIB
     Indication: NON-SMALL CELL LUNG CANCER
     Dosage: UNKNOWN DOSE
     Route: 048
     Dates: start: 201707, end: 201904

REACTIONS (2)
  - Malignant neoplasm progression [Unknown]
  - Drug resistance [Unknown]

NARRATIVE: CASE EVENT DATE: 201904
